FAERS Safety Report 5725340-5 (Version None)
Quarter: 2008Q2

REPORT INFORMATION
  Report Type: 
  Country: None (occurrence: None)
  Receive Date: 20080501
  Receipt Date: 20080425
  Transmission Date: 20081010
  Serious: Yes (Other)
  Sender: FDA-Public Use
  Company Number: US-PURDUE-USA_2008_0032703

PATIENT
  Sex: Male

DRUGS (1)
  1. OXYCONTIN [Suspect]
     Indication: PAIN
     Dosage: 40 MG, TID
     Route: 048
     Dates: end: 20050423

REACTIONS (4)
  - BLOOD GLUCOSE INCREASED [None]
  - PAIN [None]
  - PALPITATIONS [None]
  - SUICIDAL IDEATION [None]
